FAERS Safety Report 6203994-7 (Version None)
Quarter: 2009Q2

REPORT INFORMATION
  Report Type: 
  Country: None (occurrence: None)
  Receive Date: 20090526
  Receipt Date: 20090526
  Transmission Date: 20091009
  Serious: Yes (Other)
  Sender: FDA-Public Use
  Company Number: None

PATIENT
  Age: 28 Year
  Sex: Female
  Weight: 56.6996 kg

DRUGS (1)
  1. CEFDINIR [Suspect]
     Indication: SINUSITIS
     Dosage: TWO CAPSULES DAILY PO
     Route: 048
     Dates: start: 20090522, end: 20090524

REACTIONS (3)
  - ABDOMINAL PAIN [None]
  - FREQUENT BOWEL MOVEMENTS [None]
  - VOMITING [None]
